FAERS Safety Report 12497248 (Version 2)
Quarter: 2016Q2

REPORT INFORMATION
  Report Type: Report from Study
  Country: AU (occurrence: AU)
  Receive Date: 20160624
  Receipt Date: 20160627
  Transmission Date: 20160815
  Serious: Yes (Other)
  Sender: FDA-Public Use
  Company Number: AU-BAYER-2016-117130

PATIENT
  Sex: Female

DRUGS (1)
  1. BETAFERON [Suspect]
     Active Substance: INTERFERON BETA-1B
     Indication: MULTIPLE SCLEROSIS
     Dosage: UNK UNK, QOD
     Route: 058
     Dates: start: 20010101

REACTIONS (4)
  - Herpes zoster [Not Recovered/Not Resolved]
  - Injection site pain [Not Recovered/Not Resolved]
  - Cellulitis [Not Recovered/Not Resolved]
  - Stress [Not Recovered/Not Resolved]
